FAERS Safety Report 7543834-7 (Version None)
Quarter: 2011Q2

REPORT INFORMATION
  Report Type: 
  Country: None (occurrence: None)
  Receive Date: 20110613
  Receipt Date: 20110610
  Transmission Date: 20111010
  Serious: Yes (Other)
  Sender: FDA-Public Use
  Company Number: US-UCBSA-034328

PATIENT
  Sex: Male

DRUGS (1)
  1. KEPPRA XR [Suspect]

REACTIONS (1)
  - EYE OPERATION [None]
